FAERS Safety Report 4814986-4 (Version None)
Quarter: 2005Q4

REPORT INFORMATION
  Report Type: 
  Country: None (occurrence: None)
  Receive Date: 20051026
  Receipt Date: 20051012
  Transmission Date: 20060501
  Serious: Yes (Other)
  Sender: FDA-Public Use
  Company Number: 2005BI017960

PATIENT
  Age: 57 Year
  Sex: Female

DRUGS (13)
  1. NATALIZUMAB (NATALIZUMAB) [Suspect]
     Indication: CROHN'S DISEASE
     Dosage: 300 MG;QM;IM
     Route: 030
     Dates: start: 20030708, end: 20040128
  2. PREDNISONE [Concomitant]
  3. TYLENOL W/ CODEINE NO. 3 [Concomitant]
  4. ASCORBIC ACID [Concomitant]
  5. TEMAZEPAM [Concomitant]
  6. TEARS NATURALE [Concomitant]
  7. GENTEAL [Concomitant]
  8. METHOTREXATE [Concomitant]
  9. AZATHIOPRINE [Concomitant]
  10. INFLIXIMAB [Concomitant]
  11. SOLU-MEDROL [Concomitant]
  12. SOLU-CORTEF [Concomitant]
  13. FLONASE [Concomitant]

REACTIONS (2)
  - DRUG INEFFECTIVE [None]
  - MENINGIOMA [None]
